FAERS Safety Report 9196046 (Version 2)
Quarter: 2014Q1

REPORT INFORMATION
  Report Type: Report from Study
  Country: CA (occurrence: CA)
  Receive Date: 20130328
  Receipt Date: 20140113
  Transmission Date: 20141002
  Serious: Yes (Hospitalization)
  Sender: FDA-Public Use
  Company Number: CA-JNJFOC-20130313344

PATIENT
  Age: 54 Year
  Sex: Male
  Weight: 98.43 kg

DRUGS (2)
  1. REMICADE [Suspect]
     Indication: COLITIS ULCERATIVE
     Dosage: PATIENT HAD ONLY THREE LOADING DOSES.
     Route: 042
     Dates: end: 201301
  2. METHOTREXATE [Suspect]
     Indication: PRODUCT USED FOR UNKNOWN INDICATION
     Route: 065

REACTIONS (4)
  - Hospitalisation [Unknown]
  - Chills [Recovering/Resolving]
  - Loss of consciousness [Recovering/Resolving]
  - Intestinal resection [Recovering/Resolving]
